FAERS Safety Report 20959500 (Version 1)
Quarter: 2022Q2

REPORT INFORMATION
  Report Type: Spontaneous
  Country: BR (occurrence: BR)
  Receive Date: 20220614
  Receipt Date: 20220614
  Transmission Date: 20220721
  Serious: Yes (Other)
  Sender: FDA-Public Use
  Company Number: BR-BAYER-2022P004323

PATIENT
  Sex: Male

DRUGS (1)
  1. DAROLUTAMIDE [Suspect]
     Active Substance: DAROLUTAMIDE
     Indication: Hormone-refractory prostate cancer

REACTIONS (2)
  - Hyperprolactinaemia [None]
  - Gynaecomastia [None]
